FAERS Safety Report 9457387 (Version 1)
Quarter: 2013Q3

REPORT INFORMATION
  Report Type: Spontaneous
  Country: GB (occurrence: None)
  Receive Date: 20130812
  Receipt Date: 20130812
  Transmission Date: 20140515
  Serious: Yes (Hospitalization)
  Sender: FDA-Public Use
  Company Number: SYM-2013-05275

PATIENT
  Sex: Male

DRUGS (16)
  1. TASMAR [Suspect]
     Indication: PRODUCT USED FOR UNKNOWN INDICATION
     Dosage: 100 MG EVERY MORNING
  2. BUTRANS  (BUPRENORPHINE) (POULTICE OR PATCH) (BUPRENORPHINE) [Concomitant]
  3. CYANOCOBALAMIN (CYANOCOBALAMIN) (CYANOCOBALAMIN) [Concomitant]
  4. CO-BENELDOPA (MADOPAR) (LEVODOPA, BENSERAZIDE HYDROCHLORIDE) [Concomitant]
  5. METFORMIN  (METFORMIN) (METFORMIN) [Concomitant]
  6. ADCAL-D3 (CALCET /00637401/) (EFFERVESCENT TABLET) (ERGOCALCIFEROL, CALCIUM GLUCONATE, CALCIUM CARBONATE, CALCIUM LACTATE) [Concomitant]
  7. LEVOTHYROXINE (LEVOTHYROXINE) (LEVOTHYROXINE) [Concomitant]
  8. TROSPIUM (TROSPUM) (TROPIUM) [Concomitant]
  9. CILOSTAZOL (CILOSTAZOL) (CILOSTAZOL) [Concomitant]
  10. SIMVASTATIN  (SIMVASTATIN) (SIMVASTATIN) [Concomitant]
  11. AMITRIPTYLINE (AMITRIPTYLINE) AMITRIPTYLINE) [Concomitant]
  12. FINASTERIDE (FINASTERIDE) (FINASTERIDE) [Concomitant]
  13. ROTIGOTINE (ROTIGOTINE) (ROTIGOTINE) [Concomitant]
  14. LANSOPRAZOLE (LANSOPRAZOLE) (LANSOPRAZOLE) [Concomitant]
  15. HUMALOG (INSULIN LISPRO) (INSULIN LISPRO) [Concomitant]
  16. ALFUZOSIN (ALFUZOSIN) (ALFUZOSIN) [Concomitant]

REACTIONS (4)
  - Unresponsive to stimuli [None]
  - Confusional state [None]
  - Pulmonary sepsis [None]
  - Pneumonia aspiration [None]
